FAERS Safety Report 6343742-3 (Version None)
Quarter: 2009Q3

REPORT INFORMATION
  Report Type: 
  Country: None (occurrence: None)
  Receive Date: 20090908
  Receipt Date: 20090826
  Transmission Date: 20100115
  Serious: Yes (Death)
  Sender: FDA-Public Use
  Company Number: A0805952A

PATIENT
  Age: 64 Year
  Sex: Female

DRUGS (2)
  1. AVANDIA [Suspect]
     Dosage: 4MG PER DAY
     Route: 065
     Dates: start: 20041019, end: 20061019
  2. AVANDARYL [Suspect]
     Route: 065
     Dates: start: 20060217

REACTIONS (2)
  - DEATH [None]
  - RENAL FAILURE [None]
